FAERS Safety Report 16175120 (Version 1)
Quarter: 2019Q2

REPORT INFORMATION
  Report Type: Other
  Country: NL (occurrence: NL)
  Receive Date: 20190409
  Receipt Date: 20190409
  Transmission Date: 20190711
  Serious: Yes (Other)
  Sender: FDA-Public Use
  Company Number: NL-APOTEX-2019AP010910

PATIENT
  Age: 38 Year
  Sex: Male

DRUGS (1)
  1. TRAMADOL. [Suspect]
     Active Substance: TRAMADOL
     Indication: PAIN
     Dosage: 50 MG, UNK (1-3D1CAPS)
     Route: 065
     Dates: start: 20190226, end: 20190305

REACTIONS (1)
  - Anuria [Recovering/Resolving]

NARRATIVE: CASE EVENT DATE: 20190301
